FAERS Safety Report 18459308 (Version 1)
Quarter: 2020Q4

REPORT INFORMATION
  Report Type: Spontaneous
  Country: US (occurrence: US)
  Receive Date: 20201103
  Receipt Date: 20201103
  Transmission Date: 20210114
  Serious: Yes (Hospitalization, Other)
  Sender: FDA-Public Use
  Company Number: US-PURDUE-USA-2020-0173980

PATIENT
  Sex: Female

DRUGS (4)
  1. OXYCODONE HCL CR TABLETS (SIMILAR TO NDA 22-272) [Suspect]
     Active Substance: OXYCODONE HYDROCHLORIDE
     Indication: PRODUCT USED FOR UNKNOWN INDICATION
     Dosage: UNK
     Route: 048
  2. OXYCODONE/ ACETAMINOPHEN TABLETS [Suspect]
     Active Substance: ACETAMINOPHEN\OXYCODONE HYDROCHLORIDE
     Indication: PAIN
     Dosage: 10-325 MG, UNK
     Route: 048
  3. OXYCODONE HCL TABLETS (RHODES 91-490) [Suspect]
     Active Substance: OXYCODONE HYDROCHLORIDE
     Indication: PRODUCT USED FOR UNKNOWN INDICATION
     Dosage: UNK
     Route: 048
  4. OXYCONTIN [Suspect]
     Active Substance: OXYCODONE HYDROCHLORIDE
     Indication: PAIN
     Dosage: 15 MG, TID
     Route: 048
     Dates: start: 1996

REACTIONS (25)
  - Drug dependence [Unknown]
  - Thirst [Unknown]
  - Abdominal pain upper [Unknown]
  - Developmental delay [Unknown]
  - Nausea [Unknown]
  - Headache [Unknown]
  - Chills [Unknown]
  - Sleep disorder [Unknown]
  - Disturbance in attention [Unknown]
  - Diarrhoea [Unknown]
  - Asthenia [Unknown]
  - Dizziness [Unknown]
  - Learning disability [Unknown]
  - Adverse drug reaction [Unknown]
  - Abdominal distension [Unknown]
  - Hyperhidrosis [Unknown]
  - Mood altered [Unknown]
  - Depression [Unknown]
  - Memory impairment [Unknown]
  - Balance disorder [Unknown]
  - Myalgia [Unknown]
  - Dry mouth [Unknown]
  - Amnesia [Unknown]
  - Cancer surgery [Unknown]
  - Peripheral swelling [Unknown]

NARRATIVE: CASE EVENT DATE: 20200207
